FAERS Safety Report 9114919 (Version 1)
Quarter: 2013Q1

REPORT INFORMATION
  Report Type: Spontaneous
  Country: CA (occurrence: CA)
  Receive Date: 20130225
  Receipt Date: 20130225
  Transmission Date: 20140127
  Serious: Yes (Hospitalization)
  Sender: FDA-Public Use
  Company Number: CA-ELI_LILLY_AND_COMPANY-CA201302005137

PATIENT
  Age: 74 Year
  Sex: Male

DRUGS (15)
  1. FORTEO [Suspect]
     Indication: OSTEOPOROSIS
     Dosage: 20 UNK, UNK
     Route: 058
     Dates: start: 20120216
  2. GLUCOSAMINE [Concomitant]
  3. ROSUVASTATIN [Concomitant]
  4. CALCIUM [Concomitant]
  5. FOLIC ACID [Concomitant]
  6. LOSARTAN [Concomitant]
  7. ALLOPURINOL [Concomitant]
  8. TAMSULOSIN [Concomitant]
  9. METOPROLOL [Concomitant]
  10. FERROUS GLUCONATE [Concomitant]
  11. CALCIUM CARBONATE [Concomitant]
  12. LASIX [Concomitant]
  13. ESCITALOPRAM [Concomitant]
  14. GABAPENTIN [Concomitant]
  15. METFORMIN [Concomitant]

REACTIONS (5)
  - Balance disorder [Unknown]
  - Constipation [Not Recovered/Not Resolved]
  - Dizziness [Unknown]
  - Polyp [Unknown]
  - Back pain [Unknown]
